FAERS Safety Report 22213590 (Version 1)
Quarter: 2023Q2

REPORT INFORMATION
  Report Type: Spontaneous
  Country: FR (occurrence: FR)
  Receive Date: 20230414
  Receipt Date: 20230414
  Transmission Date: 20230721
  Serious: Yes (Other)
  Sender: FDA-Public Use
  Company Number: None

PATIENT
  Age: 55 Year
  Sex: Female

DRUGS (1)
  1. EMGALITY [Suspect]
     Active Substance: GALCANEZUMAB-GNLM
     Indication: Migraine
     Dosage: UNK UNK, UNKNOWN
     Route: 058
     Dates: start: 20230228, end: 20230228

REACTIONS (5)
  - Musculoskeletal stiffness [Recovering/Resolving]
  - Muscle contractions involuntary [Recovering/Resolving]
  - Muscular weakness [Recovering/Resolving]
  - Formication [Recovering/Resolving]
  - Dizziness [Recovering/Resolving]

NARRATIVE: CASE EVENT DATE: 20230301
